FAERS Safety Report 24033582 (Version 1)
Quarter: 2024Q3

REPORT INFORMATION
  Report Type: Report from Study
  Country: BR (occurrence: BR)
  Receive Date: 20240701
  Receipt Date: 20240701
  Transmission Date: 20241017
  Serious: No
  Sender: ROCHE
  Company Number: BR-ROCHE-3491184

PATIENT
  Age: 11 Month
  Sex: Female
  Weight: 9.15 kg

DRUGS (2)
  1. EVRYSDI [Suspect]
     Active Substance: RISDIPLAM
     Indication: Spinal muscular atrophy
     Route: 065
  2. ZOLGENSMA [Concomitant]
     Active Substance: ONASEMNOGENE ABEPARVOVEC-XIOI

REACTIONS (1)
  - Weight abnormal [Unknown]
